FAERS Safety Report 25097426 (Version 1)
Quarter: 2025Q1

REPORT INFORMATION
  Report Type: Report from Study
  Country: US (occurrence: US)
  Receive Date: 20250320
  Receipt Date: 20250320
  Transmission Date: 20250409
  Serious: Yes (Other)
  Sender: ROCHE
  Company Number: US-ROCHE-10000229552

PATIENT
  Age: 71 Year
  Sex: Female

DRUGS (1)
  1. OCREVUS [Suspect]
     Active Substance: OCRELIZUMAB
     Indication: Multiple sclerosis
     Route: 042

REACTIONS (7)
  - Myalgia [Unknown]
  - Arthralgia [Unknown]
  - Tooth loss [Unknown]
  - Eyelid ptosis [Unknown]
  - Cerebrovascular accident [Unknown]
  - Bone pain [Unknown]
  - Muscle spasms [Unknown]
